FAERS Safety Report 12577758 (Version 1)
Quarter: 2016Q3

REPORT INFORMATION
  Report Type: Spontaneous
  Country: US (occurrence: US)
  Receive Date: 20160721
  Receipt Date: 20160721
  Transmission Date: 20161109
  Serious: Yes (Other)
  Sender: FDA-Public Use
  Company Number: US-MACLEODS PHARMACEUTICALS US LTD-MAC2016002915

PATIENT

DRUGS (10)
  1. ZIPRASIDONE. [Suspect]
     Active Substance: ZIPRASIDONE
     Indication: MAJOR DEPRESSION
  2. ZIPRASIDONE. [Suspect]
     Active Substance: ZIPRASIDONE
     Indication: CATATONIA
     Dosage: UNK
     Route: 065
  3. ARIPIPRAZOLE. [Suspect]
     Active Substance: ARIPIPRAZOLE
     Indication: CATATONIA
  4. LITHIUM. [Concomitant]
     Active Substance: LITHIUM
     Indication: PRODUCT USED FOR UNKNOWN INDICATION
     Dosage: UNK
     Route: 065
  5. LORAZEPAM. [Concomitant]
     Active Substance: LORAZEPAM
     Indication: PRODUCT USED FOR UNKNOWN INDICATION
     Dosage: 14 MG, QD
     Route: 065
  6. OLANZAPINE. [Suspect]
     Active Substance: OLANZAPINE
     Indication: MAJOR DEPRESSION
     Dosage: UNK
     Route: 065
  7. ARIPIPRAZOLE. [Suspect]
     Active Substance: ARIPIPRAZOLE
     Indication: MAJOR DEPRESSION
     Dosage: UNK
     Route: 065
  8. BUPROPION. [Concomitant]
     Active Substance: BUPROPION
     Indication: SLEEP DISORDER
     Dosage: UNK
     Route: 065
  9. OLANZAPINE. [Suspect]
     Active Substance: OLANZAPINE
     Indication: CATATONIA
  10. TRAZODONE [Concomitant]
     Active Substance: TRAZODONE HYDROCHLORIDE
     Indication: SLEEP DISORDER
     Dosage: UNK
     Route: 065

REACTIONS (17)
  - Disturbance in attention [Recovering/Resolving]
  - Catatonia [Recovering/Resolving]
  - Aphasia [Recovering/Resolving]
  - Incoherent [Recovering/Resolving]
  - Condition aggravated [Recovering/Resolving]
  - Activities of daily living impaired [Recovering/Resolving]
  - Weight decreased [Recovering/Resolving]
  - Psychotic disorder [Recovering/Resolving]
  - Depressed mood [Recovering/Resolving]
  - Feeling guilty [Recovering/Resolving]
  - Insomnia [Recovering/Resolving]
  - Intrusive thoughts [Recovering/Resolving]
  - Movement disorder [Recovering/Resolving]
  - Soliloquy [Recovering/Resolving]
  - Abnormal behaviour [Recovering/Resolving]
  - Decreased appetite [Recovering/Resolving]
  - Dysgraphia [Recovering/Resolving]
